FAERS Safety Report 19287868 (Version 1)
Quarter: 2021Q2

REPORT INFORMATION
  Report Type: Report from Study
  Country: US (occurrence: US)
  Receive Date: 20210521
  Receipt Date: 20210521
  Transmission Date: 20210717
  Serious: Yes (Hospitalization)
  Sender: FDA-Public Use
  Company Number: US-BIOGEN-2020BI00939497

PATIENT
  Age: 85 Year
  Sex: Female

DRUGS (3)
  1. TYSABRI [Suspect]
     Active Substance: NATALIZUMAB
     Route: 065
     Dates: start: 20180223, end: 202007
  2. TYSABRI [Suspect]
     Active Substance: NATALIZUMAB
     Route: 065
     Dates: start: 20180223
  3. TYSABRI [Suspect]
     Active Substance: NATALIZUMAB
     Indication: MULTIPLE SCLEROSIS
     Route: 065
     Dates: start: 20110131, end: 20180105

REACTIONS (4)
  - Oesophageal rupture [Unknown]
  - Post procedural complication [Not Recovered/Not Resolved]
  - Gastric disorder [Unknown]
  - Gastric perforation [Unknown]

NARRATIVE: CASE EVENT DATE: 202008
